FAERS Safety Report 8687248 (Version 2)
Quarter: 2013Q2

REPORT INFORMATION
  Report Type: Spontaneous
  Country: US (occurrence: None)
  Receive Date: 20120406
  Receipt Date: 20120705
  Transmission Date: 20140414
  Serious: Yes (Hospitalization)
  Sender: FDA-Public Use
  Company Number: US-CYPR-2011-000053

PATIENT
  Age: 68 Year
  Sex: Male
  Weight: 95 kg

DRUGS (10)
  1. CLOPIDOGREL [Suspect]
     Indication: ANTIPLATELET THERAPY
     Dosage: 75 MG QD ORAL
     Route: 048
     Dates: start: 20101209
  2. ASPIRIN [Suspect]
     Indication: CORONARY ARTERY DISEASE
     Dosage: 81 MG QD ORAL, 325 MG QD ORAL
     Route: 048
     Dates: start: 20110412
  3. CLARITIN [Concomitant]
  4. DIOVAN [Concomitant]
  5. PREVACID [Concomitant]
  6. NEURONTIN [Concomitant]
  7. ROSUVASTATIN [Concomitant]
  8. METOPROLOL SUCCINATE [Concomitant]
  9. PROTONIX [Concomitant]
  10. CYPHER STENT [Concomitant]

REACTIONS (1)
  - ATRIAL FIBRILLATION [None]
